FAERS Safety Report 8052719-1 (Version None)
Quarter: 2012Q1

REPORT INFORMATION
  Report Type: 
  Country: None (occurrence: None)
  Receive Date: 20120118
  Receipt Date: 20120116
  Transmission Date: 20120608
  Serious: Yes (Hospitalization)
  Sender: FDA-Public Use
  Company Number: FI-AMGEN-FINSP2012002757

PATIENT
  Age: 65 Year
  Sex: Male

DRUGS (4)
  1. NEUPOGEN [Suspect]
     Indication: CHEMOTHERAPY
     Dosage: 480 MUG, QD
     Route: 058
     Dates: start: 20111222, end: 20111226
  2. VALTREX [Concomitant]
     Indication: PROPHYLAXIS
     Dosage: 1 G, QD
     Route: 048
  3. ANTINEOPLASTIC AGENTS [Concomitant]
     Indication: CHRONIC LYMPHOCYTIC LEUKAEMIA
  4. AMLODIPIN ACTAVIS                  /00972402/ [Concomitant]
     Dosage: 5 MG, UNK
     Route: 048

REACTIONS (1)
  - STEVENS-JOHNSON SYNDROME [None]
